FAERS Safety Report 4552745-0 (Version None)
Quarter: 2005Q1

REPORT INFORMATION
  Report Type: 
  Country: None (occurrence: None)
  Receive Date: 20050112
  Receipt Date: 20050104
  Transmission Date: 20050727
  Serious: Yes (Hospitalization, Other)
  Sender: FDA-Public Use
  Company Number: US-SHR-04-024337

PATIENT
  Age: 49 Year
  Sex: Female

DRUGS (11)
  1. BETASERON [Suspect]
     Indication: MULTIPLE SCLEROSIS
     Dosage: 8 MIU, EVERY 2D, SUBCUTANEOUS
     Route: 058
     Dates: start: 20030922
  2. AMANTADINE (AMANTADINE) [Concomitant]
  3. PROZAC [Concomitant]
  4. ZANTAC [Concomitant]
  5. DETROL [Concomitant]
  6. SENOKOT [Concomitant]
  7. CALCIUM (CALCIUM) [Concomitant]
  8. CELEBREX [Concomitant]
  9. DARVOCET [Concomitant]
  10. MULTIVITAMINS (RETINOL, PANTHENOL) [Concomitant]
  11. FIORICET [Concomitant]

REACTIONS (5)
  - BLOOD GLUCOSE DECREASED [None]
  - CONDITION AGGRAVATED [None]
  - LOSS OF CONSCIOUSNESS [None]
  - MULTIPLE SCLEROSIS [None]
  - STRESS [None]
